FAERS Safety Report 17682572 (Version 1)
Quarter: 2020Q2

REPORT INFORMATION
  Report Type: Spontaneous
  Country: CA (occurrence: CA)
  Receive Date: 20200418
  Receipt Date: 20200418
  Transmission Date: 20200714
  Serious: Yes (Death)
  Sender: FDA-Public Use
  Company Number: NVSC2020CA102391

PATIENT
  Age: 51 Year
  Sex: Female

DRUGS (10)
  1. LACTOBACILLUS [Concomitant]
     Active Substance: LACTOBACILLUS ACIDOPHILUS
     Indication: PRODUCT USED FOR UNKNOWN INDICATION
     Dosage: UNK
     Route: 065
  2. SULCRATE [Concomitant]
     Active Substance: SUCRALFATE
     Indication: PRODUCT USED FOR UNKNOWN INDICATION
     Dosage: 1 ML
     Route: 065
  3. SANDOSTATIN [Suspect]
     Active Substance: OCTREOTIDE ACETATE
     Indication: NEUROENDOCRINE TUMOUR
     Dosage: UNK
     Route: 058
  4. CAPECITABINE. [Suspect]
     Active Substance: CAPECITABINE
     Indication: PRODUCT USED FOR UNKNOWN INDICATION
     Dosage: 2 DF, BID
     Route: 048
  5. TEMOZOLOMIDE. [Concomitant]
     Active Substance: TEMOZOLOMIDE
     Indication: PRODUCT USED FOR UNKNOWN INDICATION
     Dosage: 140 MG, QD
     Route: 065
  6. SANDOSTATIN LAR DEPOT [Suspect]
     Active Substance: OCTREOTIDE ACETATE
     Indication: NEUROENDOCRINE TUMOUR
     Dosage: 30 MG, QMO
     Route: 030
  7. ESOMEPRAZOLE SODIUM. [Concomitant]
     Active Substance: ESOMEPRAZOLE SODIUM
     Indication: PRODUCT USED FOR UNKNOWN INDICATION
     Dosage: UNK UNK, BID
     Route: 065
  8. PANCREATIN [Concomitant]
     Active Substance: PANCRELIPASE
     Indication: PRODUCT USED FOR UNKNOWN INDICATION
     Dosage: UNK
     Route: 065
  9. SANDOSTATIN LAR DEPOT [Suspect]
     Active Substance: OCTREOTIDE ACETATE
     Dosage: 30 MG, Q3W
     Route: 030
  10. IMMUNGLOBULIN [Suspect]
     Active Substance: HUMAN IMMUNOGLOBULIN G
     Indication: PRODUCT USED FOR UNKNOWN INDICATION
     Dosage: 3 DF
     Route: 042

REACTIONS (76)
  - Angina bullosa haemorrhagica [Fatal]
  - Blood pressure diastolic increased [Fatal]
  - Breast pain [Fatal]
  - Chest discomfort [Fatal]
  - Faeces discoloured [Fatal]
  - Flushing [Fatal]
  - Hot flush [Fatal]
  - Movement disorder [Fatal]
  - Night sweats [Fatal]
  - Productive cough [Fatal]
  - Rales [Fatal]
  - Upper respiratory tract infection [Fatal]
  - Body temperature decreased [Fatal]
  - Chills [Fatal]
  - Cholelithiasis [Fatal]
  - Contusion [Fatal]
  - Crepitations [Fatal]
  - Fear [Fatal]
  - Inappropriate schedule of product administration [Fatal]
  - Burning sensation [Fatal]
  - Cough [Fatal]
  - Decreased appetite [Fatal]
  - Haemorrhoids [Fatal]
  - Injection site pain [Fatal]
  - Muscle swelling [Fatal]
  - Needle issue [Fatal]
  - Pain [Fatal]
  - Platelet count decreased [Fatal]
  - Somnolence [Fatal]
  - Tachycardia [Fatal]
  - Vomiting [Fatal]
  - Abdominal pain [Fatal]
  - Abdominal pain upper [Fatal]
  - Blood calcium decreased [Fatal]
  - Constipation [Fatal]
  - Dyspnoea [Fatal]
  - Feeling abnormal [Fatal]
  - Haemoglobin decreased [Fatal]
  - Hypertension [Fatal]
  - Infection [Fatal]
  - Injection site swelling [Fatal]
  - Metastases to liver [Fatal]
  - Swelling [Fatal]
  - Thrombophlebitis superficial [Fatal]
  - Underdose [Fatal]
  - Malignant neoplasm progression [Fatal]
  - Early satiety [Fatal]
  - Fatigue [Fatal]
  - Flatulence [Fatal]
  - Pain in extremity [Fatal]
  - Abdominal discomfort [Fatal]
  - Abdominal distension [Fatal]
  - Back pain [Fatal]
  - Blood magnesium decreased [Fatal]
  - Frequent bowel movements [Fatal]
  - Lethargy [Fatal]
  - Mass [Fatal]
  - Nasopharyngitis [Fatal]
  - Pallor [Fatal]
  - Stress [Fatal]
  - Death [Fatal]
  - Diarrhoea [Fatal]
  - Facial asymmetry [Fatal]
  - Headache [Fatal]
  - Malaise [Fatal]
  - Pyrexia [Fatal]
  - Asthenia [Fatal]
  - Blood pressure decreased [Fatal]
  - Erythema [Fatal]
  - Gastrointestinal disorder [Fatal]
  - Injection site erythema [Fatal]
  - Liver abscess [Fatal]
  - Muscle spasms [Fatal]
  - Nausea [Fatal]
  - Vulval disorder [Fatal]
  - Weight decreased [Fatal]
